FAERS Safety Report 18643057 (Version 1)
Quarter: 2020Q4

REPORT INFORMATION
  Report Type: Spontaneous
  Country: US (occurrence: US)
  Receive Date: 20201218
  Receipt Date: 20201218
  Transmission Date: 20210114
  Serious: Yes (Hospitalization)
  Sender: FDA-Public Use
  Company Number: None

PATIENT
  Sex: Female

DRUGS (19)
  1. GABAPENTIN. [Concomitant]
     Active Substance: GABAPENTIN
  2. PROMETJRGAN [Concomitant]
  3. OMEPRAZOLE. [Concomitant]
     Active Substance: OMEPRAZOLE
  4. SUCRALFATE. [Concomitant]
     Active Substance: SUCRALFATE
  5. ZYRTEC [Concomitant]
     Active Substance: CETIRIZINE HYDROCHLORIDE
  6. HUMIRA [Suspect]
     Active Substance: ADALIMUMAB
     Indication: RHEUMATOID ARTHRITIS
     Dosage: OTHER FREQUENCY:Q2 WEEKS;?
     Route: 058
     Dates: start: 20200116
  7. ESTRADIOL. [Concomitant]
     Active Substance: ESTRADIOL
  8. MULTIVITAMIN [Concomitant]
     Active Substance: VITAMINS
  9. SINGULAIR [Concomitant]
     Active Substance: MONTELUKAST SODIUM
  10. XARELTO [Concomitant]
     Active Substance: RIVAROXABAN
  11. XOPENEX [Concomitant]
     Active Substance: LEVALBUTEROL HYDROCHLORIDE
  12. ARMOUR THYROID [Concomitant]
     Active Substance: THYROID, PORCINE
  13. ASPIRIN. [Concomitant]
     Active Substance: ASPIRIN
  14. ESOMEPRAZOLE. [Concomitant]
     Active Substance: ESOMEPRAZOLE MAGNESIUM
  15. LEVALBUTEROL. [Concomitant]
     Active Substance: LEVALBUTEROL
  16. METHYLPRED [Concomitant]
     Active Substance: METHYLPREDNISOLONE
  17. MONTELUKAST [Concomitant]
     Active Substance: MONTELUKAST SODIUM
  18. PROGESTERONE. [Concomitant]
     Active Substance: PROGESTERONE
  19. SCOPOLAMINE [Concomitant]
     Active Substance: SCOPOLAMINE

REACTIONS (1)
  - Surgery [None]
